FAERS Safety Report 7241570-8 (Version None)
Quarter: 2011Q1

REPORT INFORMATION
  Report Type: 
  Country: None (occurrence: None)
  Receive Date: 20110124
  Receipt Date: 20100929
  Transmission Date: 20110831
  Serious: Yes (Hospitalization)
  Sender: FDA-Public Use
  Company Number: JP-MERCK-1010USA00236

PATIENT
  Age: 70 Year
  Sex: Female

DRUGS (10)
  1. MEILAX [Concomitant]
     Route: 048
     Dates: start: 20080401, end: 20080730
  2. NORVASC [Concomitant]
     Indication: HYPERTENSION
     Route: 048
  3. SENNOSIDES [Concomitant]
     Route: 048
     Dates: start: 20080612, end: 20080730
  4. PEPCID [Suspect]
     Route: 048
     Dates: start: 20080401, end: 20080730
  5. NU-LOTAN [Concomitant]
     Indication: HYPERTENSION
     Route: 048
  6. ZYLORIC [Suspect]
     Indication: HYPERURICAEMIA
     Route: 048
     Dates: start: 20080626, end: 20080730
  7. BENET [Concomitant]
     Indication: OSTEOPOROSIS
     Route: 048
  8. MAGMITT [Concomitant]
     Route: 048
     Dates: start: 20080501, end: 20080730
  9. CALFINA [Concomitant]
     Indication: OSTEOPOROSIS
     Route: 048
  10. MYSLEE [Concomitant]
     Route: 048
     Dates: start: 20080301, end: 20100730

REACTIONS (1)
  - DRUG RASH WITH EOSINOPHILIA AND SYSTEMIC SYMPTOMS [None]
